FAERS Safety Report 4497726-0 (Version None)
Quarter: 2004Q4

REPORT INFORMATION
  Report Type: 
  Country: None (occurrence: None)
  Receive Date: 20041104
  Receipt Date: 20041019
  Transmission Date: 20050328
  Serious: Yes (Hospitalization)
  Sender: FDA-Public Use
  Company Number: T04-NLD-07228-01

PATIENT
  Age: 77 Year
  Sex: Female

DRUGS (8)
  1. ESCITALOPRAM [Suspect]
     Indication: MAJOR DEPRESSION
     Dosage: 10 MG QD PO
     Route: 048
     Dates: start: 20040611, end: 20040903
  2. AMARYL [Concomitant]
  3. METFORMIN [Concomitant]
  4. ASCAL       (ACETYLSALICYLATE CALCIUM) [Concomitant]
  5. LEGENDAL           (LACTULOSE) [Concomitant]
  6. DURATEARS [Concomitant]
  7. NORTRILEN          FILMTABLETTEN [Concomitant]
  8. TRANXENE [Concomitant]

REACTIONS (6)
  - ABDOMINAL NEOPLASM [None]
  - ASCITES [None]
  - BLOOD BILIRUBIN INCREASED [None]
  - BLOOD GLUCOSE INCREASED [None]
  - CONSTIPATION [None]
  - HEPATIC CIRRHOSIS [None]
